FAERS Safety Report 4762503-X (Version None)
Quarter: 2005Q3

REPORT INFORMATION
  Report Type: 
  Country: None (occurrence: None)
  Receive Date: 20050902
  Receipt Date: 20050511
  Transmission Date: 20060218
  Serious: Yes (Hospitalization)
  Sender: FDA-Public Use
  Company Number: 2005S1003462

PATIENT
  Age: 55 Year
  Sex: Female
  Weight: 74.3899 kg

DRUGS (9)
  1. FENTANYL [Suspect]
     Indication: PAIN
     Dosage: 75 MCG/HR;QOD;TDER
     Dates: end: 20050511
  2. PARACETAMOL/HYDROCODONE BITARTRATE [Concomitant]
  3. . [Concomitant]
  4. ALPRAZOLAM [Concomitant]
  5. CYCLOBENZAPRINE HCL [Concomitant]
  6. LOSARTAN POTASSIUM [Concomitant]
  7. AMITRIPTYLINE HCL [Concomitant]
  8. RABEPRAZOLE SODIUM [Concomitant]
  9. BELLADONNA EXTRACT [Concomitant]

REACTIONS (12)
  - CHEST PAIN [None]
  - CONFUSIONAL STATE [None]
  - DIARRHOEA [None]
  - DIZZINESS [None]
  - DYSPNOEA [None]
  - FEAR [None]
  - HYPERHIDROSIS [None]
  - RASH [None]
  - SOMNOLENCE [None]
  - STOMACH DISCOMFORT [None]
  - URTICARIA [None]
  - WEIGHT DECREASED [None]
